FAERS Safety Report 10451434 (Version 2)
Quarter: 2015Q2

REPORT INFORMATION
  Report Type: Report from Study
  Country: US (occurrence: US)
  Receive Date: 20140912
  Receipt Date: 20150616
  Transmission Date: 20150821
  Serious: Yes (Hospitalization, Other)
  Sender: FDA-Public Use
  Company Number: US-GILEAD-2014-0114921

PATIENT
  Age: 49 Year
  Sex: Female

DRUGS (9)
  1. AMBRISENTAN [Suspect]
     Active Substance: AMBRISENTAN
     Indication: PULMONARY ARTERIAL HYPERTENSION
     Dosage: 10 MG, QD
     Route: 065
     Dates: start: 20140730, end: 20140813
  2. PREDNISONE. [Concomitant]
     Active Substance: PREDNISONE
  3. IBUPROFEN. [Concomitant]
     Active Substance: IBUPROFEN
  4. MUCINEX [Concomitant]
     Active Substance: GUAIFENESIN
  5. XANAX [Concomitant]
     Active Substance: ALPRAZOLAM
  6. TRAMADOL [Concomitant]
     Active Substance: TRAMADOL
  7. ZYRTEC [Concomitant]
     Active Substance: CETIRIZINE HYDROCHLORIDE
  8. AMBRISENTAN [Suspect]
     Active Substance: AMBRISENTAN
     Indication: SARCOIDOSIS
  9. LASIX [Concomitant]
     Active Substance: FUROSEMIDE

REACTIONS (1)
  - Lung transplant [Unknown]
